FAERS Safety Report 7214737-2 (Version None)
Quarter: 2011Q1

REPORT INFORMATION
  Report Type: 
  Country: None (occurrence: None)
  Receive Date: 20110107
  Receipt Date: 20100114
  Transmission Date: 20110831
  Serious: No
  Sender: FDA-Public Use
  Company Number: A0839435A

PATIENT
  Age: 48 Year
  Sex: Female

DRUGS (13)
  1. LEVETIRACETAM [Concomitant]
  2. LEXAPRO [Concomitant]
  3. TEKTURNA [Concomitant]
  4. PRAVASTATIN SODIUM [Concomitant]
  5. PHENTERMINE [Concomitant]
  6. PAROXETINE HCL [Concomitant]
  7. LAMOTRIGINE [Concomitant]
  8. LOVAZA [Suspect]
     Dosage: 1G TWICE PER DAY
     Route: 048
     Dates: start: 20100113
  9. ZOLPIDEM [Concomitant]
  10. ALPRAZOLAM [Concomitant]
  11. LISINOPRIL [Concomitant]
  12. TOPROL-XL [Concomitant]
  13. ASPIRIN [Concomitant]

REACTIONS (1)
  - ABDOMINAL PAIN LOWER [None]
